FAERS Safety Report 8936095 (Version 1)
Quarter: 2012Q4

REPORT INFORMATION
  Report Type: Spontaneous
  Country: US (occurrence: None)
  Receive Date: 20121121
  Receipt Date: 20121121
  Transmission Date: 20130627
  Serious: Yes (Other)
  Sender: FDA-Public Use
  Company Number: JPI-P-026318

PATIENT
  Age: 32 Year
  Sex: Female

DRUGS (2)
  1. XYREM (500 MILLIGRAM/MILLILITERS, SOLUTION) (SODIUM OXYBATE) [Suspect]
     Dosage: 3 gm (1.5 gm, 2 in 1 d), oal
     Route: 048
     Dates: start: 20050411
  2. XYREM (500 MILLIGRAM/MILLILITERS, SOLUTION) (SODIUM OXYBATE) [Suspect]
     Dosage: 8 gm (4 gm, 2 in 1 d), oral
     Dates: start: 20071116

REACTIONS (2)
  - Fall [None]
  - Foot fracture [None]
